FAERS Safety Report 24738744 (Version 1)
Quarter: 2024Q4

REPORT INFORMATION
  Report Type: Spontaneous
  Country: CN (occurrence: CN)
  Receive Date: 20241216
  Receipt Date: 20241216
  Transmission Date: 20250115
  Serious: Yes (Death)
  Sender: AMGEN
  Company Number: CN-AMGEN-CHNSP2024241767

PATIENT
  Age: 37 Year
  Sex: Female

DRUGS (24)
  1. XGEVA [Suspect]
     Active Substance: DENOSUMAB
     Indication: Breast cancer metastatic
     Dosage: UNK
     Route: 065
  2. FULVESTRANT [Concomitant]
     Active Substance: FULVESTRANT
     Dosage: UNK
     Route: 065
     Dates: start: 202010
  3. FULVESTRANT [Concomitant]
     Active Substance: FULVESTRANT
     Dosage: 0.5 MILLIGRAM
     Route: 065
     Dates: start: 202109
  4. GOSERELIN [Concomitant]
     Active Substance: GOSERELIN
     Dosage: UNK
     Route: 065
     Dates: start: 202010
  5. GOSERELIN [Concomitant]
     Active Substance: GOSERELIN
     Dosage: 3.6 MILLIGRAM
     Route: 058
     Dates: start: 202109
  6. ABEMACICLIB [Concomitant]
     Active Substance: ABEMACICLIB
     Dosage: 150 MILLIGRAM, BID
     Route: 065
     Dates: start: 202109
  7. INVESTIGATIONAL PRODUCT [Concomitant]
     Active Substance: INVESTIGATIONAL PRODUCT
     Dosage: 50 MILLIGRAM ON DAYS 1 TO 5
     Route: 040
     Dates: start: 202111
  8. INVESTIGATIONAL PRODUCT [Concomitant]
     Active Substance: INVESTIGATIONAL PRODUCT
     Dosage: 50 MILLIGRAM ON DAYS 1 TO 5
     Route: 040
     Dates: start: 202112
  9. INVESTIGATIONAL PRODUCT [Concomitant]
     Active Substance: INVESTIGATIONAL PRODUCT
     Dosage: 40 MILLIGRAM DAYS 1-5
     Route: 040
     Dates: start: 202201
  10. RIVOCERANIB [Concomitant]
     Active Substance: RIVOCERANIB
     Dosage: 0.25 MILLIGRAM, QD FROM DAY I TO 21 EVERY 21 DAYS
     Route: 048
  11. RIVOCERANIB [Concomitant]
     Active Substance: RIVOCERANIB
     Dosage: 0.25 MILLIGRAM, QD FROM DAY I TO 21 EVERY 21 DAYS
     Route: 048
     Dates: start: 202203, end: 202204
  12. RIVOCERANIB [Concomitant]
     Active Substance: RIVOCERANIB
     Dosage: 0.25 MILLIGRAM, QD FROM DAY I TO 21 EVERY 21 DAYS
     Route: 048
     Dates: start: 202208
  13. CATEQUENTINIB [Concomitant]
     Active Substance: CATEQUENTINIB
     Dosage: 8 MILLIGRAM, QD FROM DAY I TO 21 EVERY
     Route: 048
     Dates: start: 202112
  14. CATEQUENTINIB [Concomitant]
     Active Substance: CATEQUENTINIB
     Dosage: 8 MILLIGRAM, QD FROM DAY I TO 21 EVERY
     Route: 048
     Dates: start: 202201
  15. CATEQUENTINIB [Concomitant]
     Active Substance: CATEQUENTINIB
     Dosage: 8 MILLIGRAM, QD FROM DAY I TO 21 EVERY
     Route: 048
     Dates: start: 202204
  16. CATEQUENTINIB [Concomitant]
     Active Substance: CATEQUENTINIB
     Dosage: 8 MILLIGRAM, QD FROM DAY I TO 21 EVERY
     Route: 048
     Dates: start: 20220507
  17. CATEQUENTINIB [Concomitant]
     Active Substance: CATEQUENTINIB
     Dosage: 8 MILLIGRAM, QD FROM DAY I TO 21 EVERY
     Route: 048
  18. ERIBULIN [Concomitant]
     Active Substance: ERIBULIN
     Dosage: 2 MILLIGRAM ON DAYS I AND 8
     Route: 040
     Dates: start: 202203, end: 202204
  19. ERIBULIN [Concomitant]
     Active Substance: ERIBULIN
     Dosage: 2 MILLIGRAM ON DAYS I AND 8
     Route: 040
     Dates: start: 20220507
  20. DAROLUTAMIDE [Concomitant]
     Active Substance: DAROLUTAMIDE
     Dosage: UNK
     Route: 065
     Dates: start: 202208
  21. EXEMESTANE [Concomitant]
     Active Substance: EXEMESTANE
     Dosage: UNK
     Route: 065
     Dates: start: 202208
  22. EXEMESTANE [Concomitant]
     Active Substance: EXEMESTANE
     Dosage: UNK
     Route: 065
     Dates: start: 202208
  23. EXEMESTANE [Concomitant]
     Active Substance: EXEMESTANE
     Dosage: UNK
     Route: 065
     Dates: start: 202211
  24. BEVACIZUMAB [Concomitant]
     Active Substance: BEVACIZUMAB
     Dosage: UNK
     Route: 065
     Dates: start: 202211

REACTIONS (6)
  - Breast cancer metastatic [Fatal]
  - Myalgia [Unknown]
  - Hypoaesthesia [Unknown]
  - Abdominal pain [Unknown]
  - Pain in extremity [Unknown]
  - Fatigue [Unknown]

NARRATIVE: CASE EVENT DATE: 20211201
